FAERS Safety Report 7110129-5 (Version None)
Quarter: 2010Q4

REPORT INFORMATION
  Report Type: 
  Country: None (occurrence: None)
  Receive Date: 20101118
  Receipt Date: 20101111
  Transmission Date: 20110411
  Serious: Yes (Other)
  Sender: FDA-Public Use
  Company Number: US-BAYER-201032848NA

PATIENT
  Age: 24 Year
  Sex: Female

DRUGS (2)
  1. YASMIN [Suspect]
     Route: 048
     Dates: start: 20051228, end: 20100505
  2. OCELLA [Suspect]
     Dosage: 3MG, 0.03MG
     Route: 048

REACTIONS (1)
  - GALLBLADDER DISORDER [None]
